FAERS Safety Report 4926171-6 (Version None)
Quarter: 2006Q1

REPORT INFORMATION
  Report Type: 
  Country: None (occurrence: None)
  Receive Date: 20060228
  Receipt Date: 20060217
  Transmission Date: 20060701
  Serious: Yes (Other)
  Sender: FDA-Public Use
  Company Number: PHEH2006US02340

PATIENT
  Age: 60 Year
  Sex: Male
  Weight: 95.238 kg

DRUGS (12)
  1. ZOMETA [Suspect]
     Indication: MULTIPLE MYELOMA
     Dosage: 4MG QMO
     Dates: start: 20040927, end: 20060117
  2. ATENOLOL [Concomitant]
     Indication: HYPERTENSION
     Dosage: 100MG QD
  3. ATACAND HCT [Concomitant]
     Indication: HYPERTENSION
     Dosage: 32/12.5 QD
  4. LASIX [Concomitant]
     Indication: OEDEMA
     Dosage: 20MG QD PRN
  5. POTASSIUM CHLORIDE [Concomitant]
     Dosage: 20 MEQ QD
  6. VICODIN [Concomitant]
     Dosage: 5/500 Q6H PRN
  7. COUMADIN [Concomitant]
     Dosage: 7MG 3XWK,6MG 4XWK
  8. FENTANYL CITRATE [Concomitant]
     Dosage: 100MCG QHR
  9. VINCRISTINE + ADRIAMYCIN + DEXAMETHASONE [Concomitant]
     Dates: end: 20050418
  10. OMEPRAZOLE [Concomitant]
     Dosage: 20MG QD
  11. THALIDOMIDE [Concomitant]
     Dosage: 50MG QD
     Dates: start: 20041112
  12. DEXAMETHASONE SODIUM PHOSPHATE [Concomitant]
     Dates: start: 20041112

REACTIONS (12)
  - BACK PAIN [None]
  - CARDIAC PACEMAKER INSERTION [None]
  - COMPRESSION FRACTURE [None]
  - DEEP VEIN THROMBOSIS [None]
  - DILATATION ATRIAL [None]
  - GINGIVAL ULCERATION [None]
  - INTERNATIONAL NORMALISED RATIO [None]
  - NUCLEAR MAGNETIC RESONANCE IMAGING ABNORMAL [None]
  - OSTEONECROSIS [None]
  - PULMONARY EMBOLISM [None]
  - THROMBOSIS [None]
  - VERTEBROPLASTY [None]
